FAERS Safety Report 15883550 (Version 1)
Quarter: 2019Q1

REPORT INFORMATION
  Report Type: Spontaneous
  Country: US (occurrence: US)
  Receive Date: 20190107
  Receipt Date: 20190107
  Transmission Date: 20190417
  Serious: No
  Sender: FDA-Public Use
  Company Number: None

PATIENT
  Age: 43 Year
  Sex: Female
  Weight: 113.85 kg

DRUGS (4)
  1. XELJANZ XR [Suspect]
     Active Substance: TOFACITINIB CITRATE
     Indication: SPONDYLOLYSIS
     Route: 048
     Dates: start: 201812
  2. XELJANZ XR [Suspect]
     Active Substance: TOFACITINIB CITRATE
     Indication: IMMUNE SYSTEM DISORDER
  3. METHOTREXATE UNKNOWN [Suspect]
     Active Substance: METHOTREXATE
     Indication: SPONDYLOLYSIS
  4. METHOTREXATE UNKNOWN [Suspect]
     Active Substance: METHOTREXATE
     Indication: IMMUNE SYSTEM DISORDER

REACTIONS (1)
  - Localised infection [None]
